FAERS Safety Report 20385803 (Version 1)
Quarter: 2022Q1

REPORT INFORMATION
  Report Type: Spontaneous
  Country: FR (occurrence: FR)
  Receive Date: 20220127
  Receipt Date: 20220127
  Transmission Date: 20220423
  Serious: Yes (Other)
  Sender: FDA-Public Use
  Company Number: None

PATIENT
  Age: 51 Year
  Sex: Male
  Weight: 70 kg

DRUGS (11)
  1. ALPRAZOLAM [Suspect]
     Active Substance: ALPRAZOLAM
     Indication: Anxiety
     Dosage: 0.25 MG, QD
     Route: 048
     Dates: start: 20211122, end: 20211130
  2. PIPERACILLIN SODIUM\TAZOBACTAM SODIUM [Suspect]
     Active Substance: PIPERACILLIN SODIUM\TAZOBACTAM SODIUM
     Indication: Blood culture positive
     Dosage: 12 G, QD (4 GRAMMES 3 FOIS PAR JOUR)
     Route: 041
     Dates: start: 20211124, end: 20211206
  3. NEURONTIN [Suspect]
     Active Substance: GABAPENTIN
     Indication: Neuralgia
     Dosage: 900 MG, QD (1 GELULE 3 FOIS PAR JOUR)
     Route: 048
     Dates: start: 20211122, end: 20211201
  4. OXAZEPAM [Suspect]
     Active Substance: OXAZEPAM
     Indication: Anxiety
     Dosage: 100 MG, QD (0.5 COMPRIMES TOUTES LES 6 HEURES)
     Route: 048
     Dates: start: 20211122, end: 20211127
  5. AMIKACIN [Concomitant]
     Active Substance: AMIKACIN
     Indication: Blood culture positive
     Dosage: 1400 MG, QD
     Route: 041
     Dates: start: 20211125, end: 20211229
  6. ZOPICLONE [Concomitant]
     Active Substance: ZOPICLONE
     Indication: Insomnia
     Dosage: 1 DOSAGE FORM, QD (7.5 MG LE SOIR)
     Route: 048
     Dates: start: 20211128, end: 20211130
  7. LOVENOX [Concomitant]
     Active Substance: ENOXAPARIN SODIUM
     Indication: Thrombosis prophylaxis
     Dosage: 40 MG, QD
     Route: 058
     Dates: start: 20211122
  8. ACUPAN [Concomitant]
     Active Substance: NEFOPAM HYDROCHLORIDE
     Indication: Pain
     Dosage: 20 MG, QD (MAXIMUM 120 MG/JOUR (A LA DEMANDE)
     Route: 048
     Dates: start: 20211121
  9. AMITRIPTYLINE HYDROCHLORIDE [Concomitant]
     Active Substance: AMITRIPTYLINE HYDROCHLORIDE
     Indication: Neuralgia
     Dosage: 25 MG, QD
     Route: 048
     Dates: start: 20211122, end: 20211218
  10. KETOPROFEN [Concomitant]
     Active Substance: KETOPROFEN
     Indication: Pain
     Dosage: 200 MG, QD (100 MG MATIN ET SOIR FORME LP)
     Route: 048
     Dates: start: 20211122, end: 20211125
  11. MORPHINE SULFATE [Concomitant]
     Active Substance: MORPHINE SULFATE
     Indication: Pain
     Dosage: 10 MG, QD (10 MG A LA DEMANDE JUSQUA 6 PAR JOUR)
     Route: 048
     Dates: start: 20211122, end: 20211220

REACTIONS (1)
  - Mixed liver injury [Recovering/Resolving]

NARRATIVE: CASE EVENT DATE: 20211127
